FAERS Safety Report 15463237 (Version 1)
Quarter: 2018Q4

REPORT INFORMATION
  Report Type: Spontaneous
  Country: ES (occurrence: ES)
  Receive Date: 20181004
  Receipt Date: 20181004
  Transmission Date: 20190204
  Serious: Yes (Death, Hospitalization, Other)
  Sender: FDA-Public Use
  Company Number: ES-AUROBINDO-AUR-APL-2018-048242

PATIENT
  Age: 93 Year
  Sex: Female

DRUGS (1)
  1. AMOXICILLIN+CLAVULANIC ACID [Suspect]
     Active Substance: AMOXICILLIN\CLAVULANIC ACID
     Indication: RESPIRATORY TRACT INFECTION
     Dosage: 1 GRAM, 3 TIMES A DAY
     Route: 048
     Dates: start: 20170714, end: 20170726

REACTIONS (1)
  - Clostridium difficile colitis [Fatal]

NARRATIVE: CASE EVENT DATE: 20170723
